FAERS Safety Report 5879599-4 (Version None)
Quarter: 2008Q3

REPORT INFORMATION
  Report Type: 
  Country: None (occurrence: None)
  Receive Date: 20080911
  Receipt Date: 20080911
  Transmission Date: 20090109
  Serious: Yes (Hospitalization)
  Sender: FDA-Public Use
  Company Number: None

PATIENT
  Sex: Female
  Weight: 58 kg

DRUGS (1)
  1. MEDROXYPROGESTERONE ACETATE INJ [Suspect]
     Indication: VAGINAL HAEMORRHAGE
     Dosage: 150 MG EVERY 3 MONTHS IM
     Route: 030
     Dates: start: 20071105, end: 20080908

REACTIONS (6)
  - CRYING [None]
  - FEELING ABNORMAL [None]
  - SYNCOPE VASOVAGAL [None]
  - TREMOR [None]
  - UNRESPONSIVE TO STIMULI [None]
  - VERTIGO [None]
